FAERS Safety Report 17948324 (Version 3)
Quarter: 2021Q4

REPORT INFORMATION
  Report Type: Spontaneous
  Country: US (occurrence: US)
  Receive Date: 20200626
  Receipt Date: 20211022
  Transmission Date: 20220303
  Serious: Yes (Hospitalization, Other)
  Sender: FDA-Public Use
  Company Number: US-PFIZER INC-2020245294

PATIENT
  Sex: Female

DRUGS (1)
  1. LYRICA [Suspect]
     Active Substance: PREGABALIN
     Indication: Diabetic neuropathy
     Dosage: 100 MG, THREE TIMES A DAY (TAKE 1 CAPSULE 3 TIMES A DAY)
     Dates: start: 20170626, end: 20170630

REACTIONS (9)
  - Kidney infection [Unknown]
  - Feeding disorder [Unknown]
  - Loss of consciousness [Recovered/Resolved]
  - Renal impairment [Not Recovered/Not Resolved]
  - Memory impairment [Recovering/Resolving]
  - Feeling abnormal [Recovering/Resolving]
  - Malaise [Unknown]
  - Dizziness [Not Recovered/Not Resolved]
  - Depression [Unknown]

NARRATIVE: CASE EVENT DATE: 20170101
